FAERS Safety Report 6924970-2 (Version None)
Quarter: 2010Q3

REPORT INFORMATION
  Report Type: 
  Country: None (occurrence: None)
  Receive Date: 20100816
  Receipt Date: 20100806
  Transmission Date: 20110219
  Serious: No
  Sender: FDA-Public Use
  Company Number: US-JNJFOC-20100804114

PATIENT
  Age: 50 Year
  Sex: Male
  Weight: 158.76 kg

DRUGS (2)
  1. FENTANYL CITRATE [Suspect]
     Indication: NEUROPATHY PERIPHERAL
     Dosage: NDC#: 0781-7242-55
     Route: 062
  2. UNKNOWN MEDICATION [Concomitant]
     Indication: BLOOD PRESSURE
     Route: 065

REACTIONS (3)
  - INADEQUATE ANALGESIA [None]
  - TREATMENT NONCOMPLIANCE [None]
  - WRONG TECHNIQUE IN DRUG USAGE PROCESS [None]
